FAERS Safety Report 12673734 (Version 2)
Quarter: 2016Q3

REPORT INFORMATION
  Report Type: Spontaneous
  Country: CH (occurrence: CH)
  Receive Date: 20160822
  Receipt Date: 20160901
  Transmission Date: 20161109
  Serious: Yes (Life-Threatening, Hospitalization, Other)
  Sender: FDA-Public Use
  Company Number: CH-OTSUKA-2016_020311

PATIENT
  Age: 55 Year
  Sex: Female

DRUGS (5)
  1. ABILIFY MAINTENA [Suspect]
     Active Substance: ARIPIPRAZOLE
     Indication: AGGRESSION
     Dosage: 400 MG, QM
     Route: 030
     Dates: start: 20160719
  2. AMLODIPIN [Concomitant]
     Active Substance: AMLODIPINE BESYLATE
     Indication: PRODUCT USED FOR UNKNOWN INDICATION
     Dosage: 5 MG, 1 PER DAY
     Route: 048
  3. ESCITALOPRAM [Concomitant]
     Active Substance: ESCITALOPRAM OXALATE
     Indication: PRODUCT USED FOR UNKNOWN INDICATION
     Dosage: 5 MG, 1 PER DAY
     Route: 048
     Dates: start: 20160729, end: 20160801
  4. QUETIAPINE ACTAVIS [Concomitant]
     Active Substance: QUETIAPINE
     Indication: PRODUCT USED FOR UNKNOWN INDICATION
     Dosage: 300 MG, 2 PER DAY
     Route: 048
     Dates: end: 20160715
  5. TEMESTA [Concomitant]
     Active Substance: LORAZEPAM
     Indication: PRODUCT USED FOR UNKNOWN INDICATION
     Dosage: 1 MG, 3 PER DAY
     Route: 048

REACTIONS (7)
  - Muscle rigidity [Recovering/Resolving]
  - Tremor [Recovering/Resolving]
  - Off label use [Unknown]
  - Blood creatine phosphokinase increased [Recovered/Resolved]
  - Dysphagia [Recovering/Resolving]
  - Mutism [Recovering/Resolving]
  - Neuroleptic malignant syndrome [Recovering/Resolving]

NARRATIVE: CASE EVENT DATE: 20160719
